FAERS Safety Report 17436514 (Version 1)
Quarter: 2020Q1

REPORT INFORMATION
  Report Type: Spontaneous
  Country: JP (occurrence: JP)
  Receive Date: 20200219
  Receipt Date: 20200219
  Transmission Date: 20200409
  Serious: Yes (Hospitalization)
  Sender: FDA-Public Use
  Company Number: NVSJ2020JP002265

PATIENT
  Age: 81 Year
  Sex: Male
  Weight: 72.9 kg

DRUGS (4)
  1. LYRICA [Concomitant]
     Active Substance: PREGABALIN
     Indication: GOUT
     Dosage: 75 MG, BID
     Route: 048
     Dates: start: 20190910
  2. LYRICA [Concomitant]
     Active Substance: PREGABALIN
     Dosage: UNK, EVERY 3 HOURS
     Route: 048
     Dates: start: 20191024
  3. TEGRETOL [Suspect]
     Active Substance: CARBAMAZEPINE
     Indication: PRODUCT USED FOR UNKNOWN INDICATION
     Dosage: UNK
     Route: 065
  4. LYRICA [Concomitant]
     Active Substance: PREGABALIN
     Indication: TRIGEMINAL NEURALGIA
     Dosage: 375 MG 2 TABLETS IN THE MORNING AND 3 TABLETS IN THE EVENING
     Route: 048

REACTIONS (18)
  - Aspartate aminotransferase increased [Recovered/Resolved]
  - Protein total decreased [Unknown]
  - Blood creatinine increased [Unknown]
  - White blood cell count decreased [Unknown]
  - Blood urea increased [Recovered/Resolved]
  - C-reactive protein increased [Unknown]
  - Blood creatine phosphokinase decreased [Recovered/Resolved]
  - Intentional product misuse [Unknown]
  - Pyrexia [Recovered/Resolved]
  - Hypercreatininaemia [Recovered/Resolved]
  - Blood bilirubin increased [Recovered/Resolved]
  - Blood creatine phosphokinase increased [Recovered/Resolved]
  - Alanine aminotransferase increased [Recovered/Resolved]
  - Gout [Unknown]
  - Rhabdomyolysis [Unknown]
  - Platelet count decreased [Recovered/Resolved]
  - Malaise [Unknown]
  - Lymphocyte percentage decreased [Recovered/Resolved]

NARRATIVE: CASE EVENT DATE: 20191024
